FAERS Safety Report 24297051 (Version 2)
Quarter: 2024Q4

REPORT INFORMATION
  Report Type: Report from Study
  Country: AR (occurrence: AR)
  Receive Date: 20240909
  Receipt Date: 20241004
  Transmission Date: 20250115
  Serious: Yes (Hospitalization, Other)
  Sender: NOVARTIS
  Company Number: AR-002147023-NVSC2024AR148318

PATIENT
  Age: 48 Year
  Sex: Female

DRUGS (4)
  1. KISQALI [Suspect]
     Active Substance: RIBOCICLIB
     Indication: Breast cancer metastatic
     Dosage: 3 FOR A TOTAL OF 600
     Route: 048
     Dates: end: 202404
  2. KISQALI [Suspect]
     Active Substance: RIBOCICLIB
     Dosage: 600 MG (3 TABLETS), QD
     Route: 048
     Dates: start: 20240521
  3. TRAMADOL [Concomitant]
     Active Substance: TRAMADOL
     Indication: Analgesic therapy
     Dosage: UNK (DROPS)
     Route: 065
  4. ACETAMINOPHEN [Concomitant]
     Active Substance: ACETAMINOPHEN
     Indication: Analgesic therapy
     Dosage: UNK
     Route: 065

REACTIONS (24)
  - Eating disorder [Unknown]
  - Dehydration [Not Recovered/Not Resolved]
  - Decreased appetite [Recovered/Resolved]
  - Weight decreased [Unknown]
  - Platelet count decreased [Not Recovered/Not Resolved]
  - Dysphagia [Unknown]
  - Laboratory test abnormal [Unknown]
  - Blood albumin decreased [Unknown]
  - Drug-induced liver injury [Recovering/Resolving]
  - Renal failure [Unknown]
  - Bacterial abdominal infection [Unknown]
  - General physical health deterioration [Unknown]
  - Fluid retention [Unknown]
  - Dyspepsia [Recovering/Resolving]
  - Vomiting [Recovering/Resolving]
  - Motor dysfunction [Unknown]
  - Asthenia [Unknown]
  - Abnormal faeces [Unknown]
  - Mood swings [Recovering/Resolving]
  - Anal incontinence [Unknown]
  - Fatigue [Unknown]
  - Intra-abdominal fluid collection [Unknown]
  - Faeces soft [Unknown]
  - Faeces hard [Unknown]

NARRATIVE: CASE EVENT DATE: 20240401
